FAERS Safety Report 7184852-0 (Version None)
Quarter: 2010Q4

REPORT INFORMATION
  Report Type: 
  Country: None (occurrence: None)
  Receive Date: 20101123
  Receipt Date: 20100804
  Transmission Date: 20110411
  Serious: No
  Sender: FDA-Public Use
  Company Number: 016860

PATIENT
  Sex: Female
  Weight: 108.9 kg

DRUGS (6)
  1. CIMZIA [Suspect]
     Indication: RHEUMATOID ARTHRITIS
     Dosage: (UNSPECIFIED SUBCUTANEOUS)
     Route: 058
     Dates: start: 20100713
  2. METHOTREXATE [Concomitant]
  3. FOLIC ACID [Concomitant]
  4. SULINDAC [Concomitant]
  5. HYDROCODONE [Concomitant]
  6. ZANTAC /00550802/ [Concomitant]

REACTIONS (1)
  - BLOOD GLUCOSE INCREASED [None]
